FAERS Safety Report 12290894 (Version 4)
Quarter: 2016Q2

REPORT INFORMATION
  Report Type: Report from Study
  Country: US (occurrence: US)
  Receive Date: 20160421
  Receipt Date: 20160523
  Transmission Date: 20160815
  Serious: Yes (Other)
  Sender: FDA-Public Use
  Company Number: US-GILEAD-2016-0209613

PATIENT
  Age: 48 Year
  Sex: Female
  Weight: 91.16 kg

DRUGS (4)
  1. AMBRISENTAN [Suspect]
     Active Substance: AMBRISENTAN
     Indication: PRODUCT USED FOR UNKNOWN INDICATION
     Dosage: 10 MG, QD
     Route: 065
     Dates: start: 20160401
  2. SILDENAFIL. [Concomitant]
     Active Substance: SILDENAFIL
  3. ADCIRCA [Concomitant]
     Active Substance: TADALAFIL
  4. OXYGEN. [Concomitant]
     Active Substance: OXYGEN

REACTIONS (10)
  - Cellulitis [Recovered/Resolved]
  - Nasopharyngitis [Not Recovered/Not Resolved]
  - Erythema [Recovered/Resolved]
  - Oedema peripheral [Not Recovered/Not Resolved]
  - Swelling face [Recovered/Resolved]
  - Pulmonary arterial hypertension [Unknown]
  - Pyrexia [Recovered/Resolved]
  - Cough [Recovered/Resolved]
  - Dyspnoea exertional [Unknown]
  - Dyspnoea [Not Recovered/Not Resolved]
